FAERS Safety Report 9132413 (Version 1)
Quarter: 2013Q1

REPORT INFORMATION
  Report Type: Spontaneous
  Country: FR (occurrence: FR)
  Receive Date: 20130107
  Receipt Date: 20130107
  Transmission Date: 20140127
  Serious: Yes (Hospitalization)
  Sender: FDA-Public Use
  Company Number: FR-GLAXOSMITHKLINE-B0855233A

PATIENT
  Age: 20 Year
  Sex: Male

DRUGS (4)
  1. AZANTAC [Suspect]
     Indication: PILONIDAL CYST
     Dosage: 1TAB PER DAY
     Route: 048
     Dates: start: 20121105, end: 20121106
  2. NIFLURIL [Suspect]
     Indication: PILONIDAL CYST
     Dosage: 250MG THREE TIMES PER DAY
     Route: 048
     Dates: start: 20121105, end: 20121106
  3. FUCIDINE [Suspect]
     Indication: PILONIDAL CYST
     Dosage: 250MG PER DAY
     Route: 048
     Dates: start: 20121105, end: 20121106
  4. MUPIDERM [Concomitant]
     Indication: PILONIDAL CYST
     Route: 061
     Dates: start: 20121105, end: 20121106

REACTIONS (5)
  - Autoimmune thrombocytopenia [Recovered/Resolved]
  - Purpura [Recovered/Resolved]
  - Mouth haemorrhage [Recovered/Resolved]
  - Gingival bleeding [Recovered/Resolved]
  - Epistaxis [Recovered/Resolved]
